FAERS Safety Report 7080011-0 (Version None)
Quarter: 2010Q4

REPORT INFORMATION
  Report Type: 
  Country: None (occurrence: None)
  Receive Date: 20101102
  Receipt Date: 20100415
  Transmission Date: 20110411
  Serious: No
  Sender: FDA-Public Use
  Company Number: US-ABBOTT-10P-163-0639546-00

PATIENT
  Age: 88 Year
  Sex: Male
  Weight: 74.91 kg

DRUGS (6)
  1. BIAXIN [Suspect]
     Indication: RESPIRATORY TRACT CONGESTION
     Dates: start: 20100402, end: 20100408
  2. TOPROL-XL [Concomitant]
     Indication: HYPERTENSION
  3. ACTOS [Concomitant]
     Indication: DIABETES MELLITUS
  4. PRANDIN [Concomitant]
     Indication: DIABETES MELLITUS
  5. FOLBALIN [Concomitant]
     Indication: PRODUCT USED FOR UNKNOWN INDICATION
  6. CELEBREX [Concomitant]
     Indication: ARTHRALGIA

REACTIONS (3)
  - DRUG INEFFECTIVE [None]
  - EXPIRED DRUG ADMINISTERED [None]
  - RESPIRATORY TRACT CONGESTION [None]
